FAERS Safety Report 15916678 (Version 1)
Quarter: 2019Q1

REPORT INFORMATION
  Report Type: Report from Study
  Country: JP (occurrence: JP)
  Receive Date: 20190205
  Receipt Date: 20190205
  Transmission Date: 20190417
  Serious: Yes (Life-Threatening, Other)
  Sender: FDA-Public Use
  Company Number: JP-SUN PHARMACEUTICAL INDUSTRIES LTD-2019R1-197973

PATIENT
  Age: 63 Year
  Sex: Female

DRUGS (2)
  1. METHOTREXATE. [Suspect]
     Active Substance: METHOTREXATE
     Indication: RHEUMATOID ARTHRITIS
     Dosage: UNK
     Route: 065
  2. PREDNISOLONE. [Suspect]
     Active Substance: PREDNISOLONE
     Indication: RHEUMATOID ARTHRITIS
     Dosage: UNK
     Route: 048

REACTIONS (7)
  - Glossopharyngeal nerve paralysis [Recovering/Resolving]
  - Vasculitis necrotising [Unknown]
  - Herpes zoster [Unknown]
  - Varicella zoster virus infection [Unknown]
  - Cerebral infarction [Unknown]
  - Ischaemic stroke [Unknown]
  - Vagus nerve paralysis [Recovering/Resolving]
